FAERS Safety Report 13081542 (Version 1)
Quarter: 2017Q1

REPORT INFORMATION
  Report Type: Spontaneous
  Country: FR (occurrence: FR)
  Receive Date: 20170103
  Receipt Date: 20170103
  Transmission Date: 20170428
  Serious: Yes (Death, Life-Threatening, Hospitalization)
  Sender: FDA-Public Use
  Company Number: FR-IPCA LABORATORIES LIMITED-IPC201612-001028

PATIENT
  Age: 69 Year
  Sex: Female
  Weight: 45 kg

DRUGS (10)
  1. TRAMADOL. [Suspect]
     Active Substance: TRAMADOL
  2. NORETHANDROLONE. [Concomitant]
     Active Substance: NORETHANDROLONE
  3. RISEDRONIC ACID [Concomitant]
     Active Substance: RISEDRONIC ACID
  4. LEVOTHYROXINE. [Concomitant]
     Active Substance: LEVOTHYROXINE
  5. EPOETINE ALFA [Concomitant]
  6. OMEPRAZOLE. [Concomitant]
     Active Substance: OMEPRAZOLE
  7. PAROXETINE. [Concomitant]
     Active Substance: PAROXETINE
  8. CLONAZEPAM. [Concomitant]
     Active Substance: CLONAZEPAM
  9. PREDNISONE. [Concomitant]
     Active Substance: PREDNISONE
  10. FENTANYL. [Concomitant]
     Active Substance: FENTANYL
     Route: 062

REACTIONS (7)
  - Hepatitis [Unknown]
  - Supraventricular tachycardia [Unknown]
  - Multiple organ dysfunction syndrome [Fatal]
  - Toxicity to various agents [Unknown]
  - Renal failure [Unknown]
  - Hypoglycaemia [Unknown]
  - Cardio-respiratory arrest [Unknown]
